FAERS Safety Report 21371349 (Version 1)
Quarter: 2022Q3

REPORT INFORMATION
  Report Type: Report from Study
  Country: US (occurrence: US)
  Receive Date: 20220923
  Receipt Date: 20220923
  Transmission Date: 20221027
  Serious: No
  Sender: FDA-Public Use
  Company Number: None

PATIENT
  Sex: Female

DRUGS (1)
  1. HUMIRA [Suspect]
     Active Substance: ADALIMUMAB
     Indication: Product used for unknown indication
     Route: 058
     Dates: start: 2019

REACTIONS (8)
  - Rash [Unknown]
  - Weight increased [Unknown]
  - Fatigue [Unknown]
  - Skin haemorrhage [Unknown]
  - Pruritus [Unknown]
  - Impaired healing [Unknown]
  - Papule [Unknown]
  - Scab [Unknown]

NARRATIVE: CASE EVENT DATE: 20210101
